FAERS Safety Report 8262288 (Version 4)
Quarter: 2013Q4

REPORT INFORMATION
  Report Type: Spontaneous
  Country: US (occurrence: US)
  Receive Date: 20111123
  Receipt Date: 20131010
  Transmission Date: 20140711
  Serious: Yes (Hospitalization)
  Sender: FDA-Public Use
  Company Number: US-GLAXOSMITHKLINE-A0815871A

PATIENT
  Age: 56 Year
  Sex: Male
  Weight: 120.5 kg

DRUGS (5)
  1. AVANDAMET [Suspect]
     Indication: DIABETES MELLITUS
     Route: 048
     Dates: start: 20060803, end: 2007
  2. AVANDIA [Suspect]
     Indication: DIABETES MELLITUS
     Dosage: 4MG TWICE PER DAY
     Route: 048
     Dates: start: 2003, end: 2006
  3. GLUCOPHAGE [Concomitant]
  4. ZOCOR [Concomitant]
  5. VIAGRA [Concomitant]

REACTIONS (6)
  - Myocardial infarction [Unknown]
  - Peripheral arterial occlusive disease [Unknown]
  - Stent placement [Unknown]
  - Arterial bypass operation [Unknown]
  - Coronary artery occlusion [Unknown]
  - Cardiovascular disorder [Unknown]
